FAERS Safety Report 11735348 (Version 1)
Quarter: 2015Q4

REPORT INFORMATION
  Report Type: Report from Study
  Country: US (occurrence: US)
  Receive Date: 20151113
  Receipt Date: 20151113
  Transmission Date: 20160304
  Serious: Yes (Hospitalization)
  Sender: FDA-Public Use
  Company Number: US-ACTELION-A-US2015-126972

PATIENT
  Age: 77 Year
  Sex: Female

DRUGS (2)
  1. VENTAVIS [Suspect]
     Active Substance: ILOPROST
     Indication: PULMONARY ARTERIAL HYPERTENSION
     Dosage: 5 MCG, 6-9X/ DAY
     Route: 055
     Dates: start: 20141015
  2. ADCIRCA [Concomitant]
     Active Substance: TADALAFIL

REACTIONS (7)
  - Viral infection [Unknown]
  - Diarrhoea [Unknown]
  - Colitis [Unknown]
  - Speech disorder [Unknown]
  - Hypoaesthesia [Unknown]
  - VIIth nerve paralysis [Unknown]
  - Mucous stools [Unknown]
